FAERS Safety Report 4950247-0 (Version None)
Quarter: 2006Q1

REPORT INFORMATION
  Report Type: 
  Country: None (occurrence: None)
  Receive Date: 20060315
  Receipt Date: 20060303
  Transmission Date: 20060701
  Serious: Yes (Life-Threatening)
  Sender: FDA-Public Use
  Company Number: 2006033167

PATIENT
  Age: 27 Year
  Sex: Female
  Weight: 48 kg

DRUGS (8)
  1. RIFABUTIN CAPSULE (RIFABUTIN) [Suspect]
     Indication: PULMONARY TUBERCULOSIS
     Dosage: 150 MG, 3 IN 1 WK, ORAL
     Route: 048
     Dates: start: 20051121, end: 20060208
  2. DAPSONE [Concomitant]
  3. FLUCONAZOLE [Concomitant]
  4. ISONIAZID [Concomitant]
  5. ABACAVIR SULFATE LAMIVUDINE AND ZIDOVUDINE [Concomitant]
  6. KALETRA [Concomitant]
  7. PYRAZINAMIDE [Concomitant]
  8. ETHAMBUTOL [Concomitant]

REACTIONS (2)
  - HEPATITIS ACUTE [None]
  - INTERNATIONAL NORMALISED RATIO INCREASED [None]
